FAERS Safety Report 5688048-0 (Version None)
Quarter: 2008Q1

REPORT INFORMATION
  Report Type: 
  Country: None (occurrence: None)
  Receive Date: 20080327
  Receipt Date: 20080312
  Transmission Date: 20080703
  Serious: Yes (Other)
  Sender: FDA-Public Use
  Company Number: 2008US000790

PATIENT
  Sex: Male

DRUGS (2)
  1. PROGRAF [Suspect]
     Indication: TRANSPLANT
  2. MYCOPHENOLATE MOFETIL [Concomitant]

REACTIONS (9)
  - DRUG EFFECT DECREASED [None]
  - HYPERGLYCAEMIA [None]
  - NAIL DISORDER [None]
  - NAIL DYSTROPHY [None]
  - PALMAR ERYTHEMA [None]
  - PERIVASCULAR DERMATITIS [None]
  - RASH ERYTHEMATOUS [None]
  - SKIN EXFOLIATION [None]
  - TRANSPLANT REJECTION [None]
